FAERS Safety Report 23755107 (Version 1)
Quarter: 2024Q2

REPORT INFORMATION
  Report Type: Spontaneous
  Country: FR (occurrence: FR)
  Receive Date: 20240418
  Receipt Date: 20240418
  Transmission Date: 20240715
  Serious: Yes (Other)
  Sender: FDA-Public Use
  Company Number: None

PATIENT
  Age: 36 Year
  Sex: Female

DRUGS (8)
  1. RIFATER [Suspect]
     Active Substance: ISONIAZID\PYRAZINAMIDE\RIFAMPIN
     Indication: Lymph node tuberculosis
     Dosage: 5 DF, QD
     Route: 048
     Dates: start: 20240126, end: 20240217
  2. ETHAMBUTOL HYDROCHLORIDE [Suspect]
     Active Substance: ETHAMBUTOL HYDROCHLORIDE
     Indication: Lymph node tuberculosis
     Dosage: 1G, QD
     Route: 048
     Dates: start: 20240126, end: 20240217
  3. KEPPRA [Concomitant]
     Active Substance: LEVETIRACETAM
  4. LEVOTHYROXINE [Concomitant]
     Active Substance: LEVOTHYROXINE\LEVOTHYROXINE SODIUM
  5. VALPROATE SODIUM [Concomitant]
     Active Substance: VALPROATE SODIUM
  6. FERROUS SULFATE [Concomitant]
     Active Substance: FERROUS SULFATE
  7. LAMICTAL [Concomitant]
     Active Substance: LAMOTRIGINE
  8. PYRIDOXINE [Concomitant]
     Active Substance: PYRIDOXINE

REACTIONS (1)
  - Neutropenia [Recovered/Resolved]

NARRATIVE: CASE EVENT DATE: 20240209
